FAERS Safety Report 9918456 (Version 1)
Quarter: 2014Q1

REPORT INFORMATION
  Report Type: Spontaneous
  Country: US (occurrence: US)
  Receive Date: 20140224
  Receipt Date: 20140224
  Transmission Date: 20141002
  Serious: No
  Sender: FDA-Public Use
  Company Number: US-009507513-1402USA006087

PATIENT
  Age: 20 Year
  Sex: Female

DRUGS (29)
  1. METHYLPREDNISOLONE SODIUM SUCCINATE [Suspect]
     Indication: SYSTEMIC LUPUS ERYTHEMATOSUS
     Dosage: 500 MG, BID
     Route: 042
  2. METHYLPREDNISOLONE SODIUM SUCCINATE [Suspect]
     Indication: PNEUMONIA
  3. HYDROXYCHLOROQUINE SULFATE [Suspect]
     Indication: PYREXIA
  4. ACETAMINOPHEN [Concomitant]
     Indication: PYREXIA
  5. ACETAMINOPHEN [Concomitant]
     Indication: UPPER RESPIRATORY TRACT INFECTION
  6. HYDROCODONE [Concomitant]
     Indication: PYREXIA
  7. HYDROCODONE [Concomitant]
     Indication: UPPER RESPIRATORY TRACT INFECTION
  8. MESNA [Concomitant]
     Indication: PYREXIA
  9. MESNA [Concomitant]
     Indication: UPPER RESPIRATORY TRACT INFECTION
  10. SULFAMETHOXAZOLE (+) TRIMETHOPRIM [Concomitant]
     Indication: PYREXIA
  11. SULFAMETHOXAZOLE (+) TRIMETHOPRIM [Concomitant]
     Indication: UPPER RESPIRATORY TRACT INFECTION
  12. SILDENAFIL CITRATE [Concomitant]
     Indication: PYREXIA
  13. SILDENAFIL CITRATE [Concomitant]
     Indication: UPPER RESPIRATORY TRACT INFECTION
  14. PANTOPRAZOLE [Concomitant]
     Indication: PYREXIA
  15. PANTOPRAZOLE [Concomitant]
     Indication: UPPER RESPIRATORY TRACT INFECTION
  16. ONDANSETRON HYDROCHLORIDE [Concomitant]
     Indication: PYREXIA
  17. ONDANSETRON HYDROCHLORIDE [Concomitant]
     Indication: UPPER RESPIRATORY TRACT INFECTION
  18. MYCOPHENOLATE MOFETIL [Concomitant]
     Indication: PYREXIA
  19. MYCOPHENOLATE MOFETIL [Concomitant]
     Indication: UPPER RESPIRATORY TRACT INFECTION
  20. LEUPROLIDE [Concomitant]
     Indication: PYREXIA
  21. LEUPROLIDE [Concomitant]
     Indication: UPPER RESPIRATORY TRACT INFECTION
  22. FOLIC ACID [Concomitant]
     Indication: PYREXIA
  23. FOLIC ACID [Concomitant]
     Indication: UPPER RESPIRATORY TRACT INFECTION
  24. DIPHENHYDRAMINE HYDROCHLORIDE [Concomitant]
     Indication: PYREXIA
  25. DIPHENHYDRAMINE HYDROCHLORIDE [Concomitant]
     Indication: UPPER RESPIRATORY TRACT INFECTION
  26. CYCLOPHOSPHAMIDE [Concomitant]
     Indication: PYREXIA
  27. CYCLOPHOSPHAMIDE [Concomitant]
     Indication: UPPER RESPIRATORY TRACT INFECTION
  28. CALCIUM CARBONATE [Concomitant]
     Indication: PYREXIA
  29. CALCIUM CARBONATE [Concomitant]
     Indication: UPPER RESPIRATORY TRACT INFECTION

REACTIONS (1)
  - Bradycardia [Recovering/Resolving]
